FAERS Safety Report 12775223 (Version 2)
Quarter: 2016Q3

REPORT INFORMATION
  Report Type: Spontaneous
  Country: US (occurrence: US)
  Receive Date: 20160923
  Receipt Date: 20160929
  Transmission Date: 20161109
  Serious: Yes (Hospitalization)
  Sender: FDA-Public Use
  Company Number: US-HORIZON-RAV-0185-2016

PATIENT
  Age: 9 Year
  Sex: Female

DRUGS (5)
  1. IRON [Concomitant]
     Active Substance: IRON
  2. RAVICTI [Suspect]
     Active Substance: GLYCEROL PHENYLBUTYRATE
     Indication: UREA CYCLE ENZYME DEFICIENCY
     Dosage: 0.5 ML BID
     Dates: start: 20160601
  3. MULTIVITAMIN [Concomitant]
     Active Substance: VITAMINS
  4. AMINO ACIDS [Concomitant]
     Active Substance: AMINO ACIDS
  5. PRO-PHREE [Concomitant]

REACTIONS (1)
  - Urinary tract infection [Recovering/Resolving]

NARRATIVE: CASE EVENT DATE: 20160915
